FAERS Safety Report 6231716-2 (Version None)
Quarter: 2009Q2

REPORT INFORMATION
  Report Type: 
  Country: None (occurrence: None)
  Receive Date: 20090616
  Receipt Date: 20090604
  Transmission Date: 20091009
  Serious: Yes (Hospitalization)
  Sender: FDA-Public Use
  Company Number: BE-PFIZER INC-2008100969

PATIENT
  Age: 52 Year

DRUGS (27)
  1. VORICONAZOLE [Suspect]
     Dosage: 4 MG/KG, UNK
     Route: 042
     Dates: start: 20081013, end: 20081019
  2. VORICONAZOLE [Suspect]
     Dosage: UNK
     Route: 042
     Dates: start: 20081020, end: 20081107
  3. VORICONAZOLE [Suspect]
     Dosage: 200 MG, 2X/DAY
     Route: 048
     Dates: start: 20081107, end: 20081120
  4. BLINDED *PLACEBO [Suspect]
     Indication: SYSTEMIC CANDIDA
     Dosage: 100 MG, 1X/DAY
     Route: 042
     Dates: start: 20081013, end: 20081019
  5. BLINDED ANIDULAFUNGIN [Suspect]
     Indication: SYSTEMIC CANDIDA
     Dosage: 100 MG, 1X/DAY
     Route: 042
     Dates: start: 20081013, end: 20081019
  6. MAGNESIUM SULFATE [Concomitant]
     Dosage: UNK
     Route: 042
     Dates: start: 20080921, end: 20081127
  7. POTASSIUM CHLORIDE [Concomitant]
     Route: 042
     Dates: start: 20080921
  8. NEXIUM [Concomitant]
     Route: 048
     Dates: start: 20081013
  9. LORAMET [Concomitant]
     Dosage: UNK
     Route: 048
     Dates: start: 20090929
  10. ZOVIRAX [Concomitant]
     Route: 042
     Dates: start: 20081003
  11. CASPOFUNGIN [Concomitant]
     Dosage: UNK
     Route: 042
     Dates: start: 20081020, end: 20081030
  12. MERONEM [Concomitant]
     Dosage: UNK
     Route: 042
     Dates: start: 20081004
  13. FIBRE, DIETARY [Concomitant]
     Dosage: UNK
     Dates: start: 20081017, end: 20081019
  14. TAZOCIN [Concomitant]
     Dosage: UNK
     Route: 042
     Dates: start: 20081019, end: 20081021
  15. CONTRAMAL [Concomitant]
     Dosage: UNK
     Route: 042
     Dates: start: 20081012, end: 20081021
  16. LITICAN [Concomitant]
     Dosage: UNK
     Route: 042
     Dates: start: 20080101, end: 20081025
  17. LASIX [Concomitant]
     Dosage: UNK
     Route: 042
     Dates: start: 20081008, end: 20081026
  18. ISOBETADINE [Concomitant]
     Dosage: UNK
     Route: 002
     Dates: start: 20080901
  19. NICOTINELL [Concomitant]
     Dosage: UNK
     Route: 062
     Dates: start: 20080918
  20. BIAFINE [Concomitant]
     Dosage: UNK
     Route: 062
     Dates: start: 20080926
  21. SOLUTIONS FOR PARENTERAL NUTRITION [Concomitant]
     Dosage: UNK
     Route: 048
     Dates: start: 20080926
  22. SOLU-CORTEF [Concomitant]
     Dosage: UNK
     Dates: start: 20081006
  23. POLARAMINE [Concomitant]
     Dosage: UNK
     Dates: start: 20081006
  24. NEUPOGEN [Concomitant]
     Dosage: UNK
     Dates: start: 20081009
  25. LAUROMACROGOL 400/SODIUM OLEATE [Concomitant]
     Dosage: UNK
     Route: 042
     Dates: start: 20081011
  26. TRANXENE [Concomitant]
     Dosage: UNK
     Route: 042
     Dates: start: 20081012
  27. XYZAL [Concomitant]
     Dosage: UNK
     Route: 048
     Dates: start: 20081021

REACTIONS (1)
  - ENCEPHALOPATHY [None]
